FAERS Safety Report 16095375 (Version 1)
Quarter: 2019Q1

REPORT INFORMATION
  Report Type: Spontaneous
  Country: US (occurrence: US)
  Receive Date: 20190218
  Receipt Date: 20190218
  Transmission Date: 20190418
  Serious: Yes (Hospitalization)
  Sender: FDA-Public Use
  Company Number: None

PATIENT
  Sex: Female

DRUGS (1)
  1. TADALAFIL 20 MG TABLET [Suspect]
     Active Substance: TADALAFIL
     Route: 048
     Dates: start: 20181201

REACTIONS (1)
  - Therapeutic procedure [None]

NARRATIVE: CASE EVENT DATE: 2019
